FAERS Safety Report 16088177 (Version 1)
Quarter: 2019Q2

REPORT INFORMATION
  Report Type: Spontaneous
  Country: US (occurrence: US)
  Receive Date: 20190318
  Receipt Date: 20190318
  Transmission Date: 20190711
  Serious: No
  Sender: FDA-Public Use
  Company Number: None

PATIENT
  Age: 49 Year
  Sex: Female
  Weight: 69.75 kg

DRUGS (1)
  1. SULFAMETHOXAZOLE/TRIMETHOPRIM [Suspect]
     Active Substance: SULFAMETHOXAZOLE\TRIMETHOPRIM
     Indication: SINUSITIS
     Dosage: ?          QUANTITY:20 TABLET(S);?
     Route: 048
     Dates: start: 20190308, end: 20190318

REACTIONS (7)
  - Weight decreased [None]
  - Hyperhidrosis [None]
  - Hot flush [None]
  - Feeding disorder [None]
  - Tremor [None]
  - Rectal haemorrhage [None]
  - Decreased appetite [None]

NARRATIVE: CASE EVENT DATE: 20190317
